FAERS Safety Report 4982232-7 (Version None)
Quarter: 2006Q2

REPORT INFORMATION
  Report Type: 
  Country: None (occurrence: None)
  Receive Date: 20060419
  Receipt Date: 20060412
  Transmission Date: 20061013
  Serious: Yes (Hospitalization)
  Sender: FDA-Public Use
  Company Number: 212826

PATIENT
  Age: 72 Year
  Sex: Male

DRUGS (7)
  1. XOLAIR [Suspect]
     Indication: ASTHMA
     Dosage: 375 MG, Q2W, SUBCUTANEOUS
     Route: 058
     Dates: start: 20041104, end: 20060316
  2. ADVAIR DISKUS 100/50 [Concomitant]
  3. ALBUTEROL (ALBUTEROL/ALBUTEROL SULFATE) [Concomitant]
  4. ATROVENT [Concomitant]
  5. PRILOSEC [Concomitant]
  6. SPIRIVA [Concomitant]
  7. FLU VACCINE (INFLUENZA VIRUS VACCINE) [Concomitant]

REACTIONS (5)
  - EJECTION FRACTION DECREASED [None]
  - MYOPERICARDITIS [None]
  - PERICARDIAL EFFUSION [None]
  - PYREXIA [None]
  - REFUSAL OF TREATMENT BY PATIENT [None]
